FAERS Safety Report 4977263-7 (Version None)
Quarter: 2006Q2

REPORT INFORMATION
  Report Type: 
  Country: None (occurrence: None)
  Receive Date: 20060419
  Receipt Date: 20060313
  Transmission Date: 20061013
  Serious: Yes (Hospitalization)
  Sender: FDA-Public Use
  Company Number: US-MERCK-0603USA02290

PATIENT
  Age: 57 Year
  Sex: Male
  Weight: 76 kg

DRUGS (9)
  1. VIOXX [Suspect]
     Route: 048
  2. VIOXX [Suspect]
     Route: 048
  3. MEVACOR [Concomitant]
     Route: 065
  4. PRINIVIL [Concomitant]
     Route: 065
  5. HYDROCHLOROTHIAZIDE [Concomitant]
     Route: 065
  6. PLAVIX [Concomitant]
     Route: 065
  7. INSULIN [Concomitant]
     Route: 065
  8. NOVOLIN 70/30 [Concomitant]
     Route: 065
  9. ASPIRIN [Concomitant]
     Route: 065

REACTIONS (1)
  - CEREBROVASCULAR ACCIDENT [None]
